FAERS Safety Report 7515735-1 (Version None)
Quarter: 2011Q2

REPORT INFORMATION
  Report Type: 
  Country: None (occurrence: None)
  Receive Date: 20110601
  Receipt Date: 20110330
  Transmission Date: 20111010
  Serious: No
  Sender: FDA-Public Use
  Company Number: US-PFIZER INC-2010119856

PATIENT
  Sex: Female
  Weight: 85 kg

DRUGS (1)
  1. CHANTIX [Suspect]
     Indication: TOBACCO ABUSE
     Dosage: UNK
     Dates: start: 20100913

REACTIONS (3)
  - DRUG DISPENSING ERROR [None]
  - NAUSEA [None]
  - MALAISE [None]
